FAERS Safety Report 6809095 (Version 2)
Quarter: 2013Q2

REPORT INFORMATION
  Report Type: Spontaneous
  Country: DE (occurrence: DE)
  Receive Date: 20081112
  Receipt Date: 20130429
  Transmission Date: 20140414
  Serious: Yes (Other)
  Sender: FDA-Public Use
  Company Number: PHHY2008DE22311

PATIENT
  Sex: Female

DRUGS (2)
  1. DIOVAN [Suspect]
     Indication: HYPERTENSION
     Dosage: 160 MG, UNK
  2. CO-DIOVAN [Suspect]
     Indication: HYPERTENSION
     Dosage: 1 DF (160 MG VALS, 25 MG HYDR), UNK
     Dates: end: 200808

REACTIONS (4)
  - Muscle atrophy [Unknown]
  - Arthropathy [Unknown]
  - Frequent bowel movements [Unknown]
  - Blood pressure inadequately controlled [Unknown]
